FAERS Safety Report 9147723 (Version 1)
Quarter: 2013Q1

REPORT INFORMATION
  Report Type: Spontaneous
  Country: US (occurrence: US)
  Receive Date: 20130307
  Receipt Date: 20130307
  Transmission Date: 20140127
  Serious: No
  Sender: FDA-Public Use
  Company Number: US-009507513-1303USA003190

PATIENT
  Age: 2 Year
  Sex: Male

DRUGS (2)
  1. AFRIN [Suspect]
     Indication: RESPIRATORY TRACT CONGESTION
     Dosage: UNK, UNKNOWN
     Route: 045
  2. AFRIN [Suspect]
     Indication: NASOPHARYNGITIS

REACTIONS (6)
  - Nasal oedema [Not Recovered/Not Resolved]
  - Skin fissures [Not Recovered/Not Resolved]
  - Rhinorrhoea [Not Recovered/Not Resolved]
  - Drug effect decreased [Unknown]
  - Drug administered to patient of inappropriate age [Unknown]
  - Off label use [Unknown]
